FAERS Safety Report 16716610 (Version 3)
Quarter: 2019Q3

REPORT INFORMATION
  Report Type: Spontaneous
  Country: US (occurrence: US)
  Receive Date: 20190819
  Receipt Date: 20190925
  Transmission Date: 20191005
  Serious: Yes (Other)
  Sender: FDA-Public Use
  Company Number: US-IGSA-SR10008901

PATIENT
  Age: 71 Year
  Sex: Female
  Weight: 91 kg

DRUGS (15)
  1. ATORVASTATIN [Concomitant]
     Active Substance: ATORVASTATIN
  2. TOPAMAX [Concomitant]
     Active Substance: TOPIRAMATE
     Dosage: 75 MG, UNK
  3. OXYCODONE AND ACETAMINOPHEN [Concomitant]
     Active Substance: ACETAMINOPHEN\OXYCODONE HYDROCHLORIDE
  4. DIPHENHYDRAMINE                    /00000402/ [Concomitant]
     Active Substance: DIPHENHYDRAMINE
     Dosage: 25 MG, UNK
  5. CRANBERRY                          /01512301/ [Concomitant]
     Active Substance: CRANBERRY
     Dosage: 405 MG, UNK
  6. VITAMIN B12 [Concomitant]
     Active Substance: CYANOCOBALAMIN
     Dosage: 1000 MG, UNK
  7. HEPARIN LOCK FLUSH [Concomitant]
     Active Substance: HEPARIN SODIUM
  8. LISINOPRIL                         /00894002/ [Concomitant]
     Active Substance: LISINOPRIL
     Dosage: 10 MG, UNK
  9. RANITIDINE. [Concomitant]
     Active Substance: RANITIDINE
     Dosage: 150 MG, UNK
  10. GAMUNEX-C [Suspect]
     Active Substance: HUMAN IMMUNOGLOBULIN G
     Indication: CHRONIC INFLAMMATORY DEMYELINATING POLYRADICULONEUROPATHY
     Dosage: 90 G, Q.4WK.
     Route: 042
     Dates: start: 20190715
  11. STOOL SOFTENER (DOCUSATE) [Concomitant]
     Active Substance: DOCUSATE
     Dosage: 100 MG, UNK
  12. NORMAL SALINE [Concomitant]
     Active Substance: SODIUM CHLORIDE
  13. AMITRIPTYLINE [Concomitant]
     Active Substance: AMITRIPTYLINE
     Dosage: 50 MG, UNK
  14. DULOXETINE. [Concomitant]
     Active Substance: DULOXETINE
     Dosage: 30 MG, UNK
  15. BETAMETHASONE                      /00008502/ [Concomitant]
     Active Substance: BETAMETHASONE SODIUM PHOSPHATE
     Route: 061

REACTIONS (4)
  - Hypersensitivity [Recovered/Resolved]
  - Urticaria [Recovered/Resolved]
  - Pruritus [Recovered/Resolved]
  - Swelling face [Recovered/Resolved]

NARRATIVE: CASE EVENT DATE: 20190715
